FAERS Safety Report 4587864-6 (Version None)
Quarter: 2005Q1

REPORT INFORMATION
  Report Type: 
  Country: None (occurrence: None)
  Receive Date: 20050125
  Receipt Date: 20040827
  Transmission Date: 20050727
  Serious: No
  Sender: FDA-Public Use
  Company Number: USA040876780

PATIENT
  Age: 61 Year
  Sex: Female

DRUGS (5)
  1. FORTEO [Suspect]
     Indication: OSTEOPOROSIS
     Dates: start: 20040827, end: 20040827
  2. PREVACID [Concomitant]
  3. PROTONIX [Concomitant]
  4. REGLAN [Concomitant]
  5. FOSAMAX [Concomitant]

REACTIONS (10)
  - ASTHENIA [None]
  - BURNING SENSATION [None]
  - DIZZINESS [None]
  - DYSPEPSIA [None]
  - FEELING ABNORMAL [None]
  - FEELING HOT [None]
  - HYPOAESTHESIA [None]
  - NAUSEA [None]
  - OESOPHAGEAL PAIN [None]
  - STOMACH DISCOMFORT [None]
